FAERS Safety Report 6504591-6 (Version None)
Quarter: 2009Q4

REPORT INFORMATION
  Report Type: 
  Country: None (occurrence: None)
  Receive Date: 20091215
  Receipt Date: 20091202
  Transmission Date: 20100525
  Serious: Yes (Hospitalization)
  Sender: FDA-Public Use
  Company Number: 2009-4828

PATIENT
  Age: 51 Year
  Sex: Female
  Weight: 58.2 kg

DRUGS (6)
  1. DYSPORT [Suspect]
     Indication: MIGRAINE
     Dosage: 500 UNITS, SINGL CYCLE, INTRAMUSCULAR
     Route: 030
     Dates: start: 20091111, end: 20091111
  2. TOPAMAX [Concomitant]
  3. PRILOSEC [Concomitant]
  4. LORAZEPAM [Concomitant]
  5. VICODIN [Concomitant]
  6. ASPIRIN [Concomitant]

REACTIONS (15)
  - DIZZINESS [None]
  - DRUG HYPERSENSITIVITY [None]
  - DRY MOUTH [None]
  - DYSPNOEA [None]
  - EATING DISORDER [None]
  - GLOSSODYNIA [None]
  - HYPOAESTHESIA [None]
  - HYPOAESTHESIA EYE [None]
  - OFF LABEL USE [None]
  - PANIC ATTACK [None]
  - PARAESTHESIA [None]
  - PRURITUS GENERALISED [None]
  - SENSATION OF FOREIGN BODY [None]
  - SWOLLEN TONGUE [None]
  - WEIGHT DECREASED [None]
